FAERS Safety Report 5529308-3 (Version None)
Quarter: 2007Q4

REPORT INFORMATION
  Report Type: 
  Country: None (occurrence: None)
  Receive Date: 20071129
  Receipt Date: 20071121
  Transmission Date: 20080405
  Serious: Yes (Hospitalization)
  Sender: FDA-Public Use
  Company Number: US-BRISTOL-MYERS SQUIBB COMPANY-13989751

PATIENT
  Age: 56 Year
  Sex: Female
  Weight: 42 kg

DRUGS (4)
  1. CETUXIMAB [Suspect]
     Indication: COLON CANCER STAGE III
     Dosage: START DATE OF FIRST COURSE:30-JUL-2007.
     Route: 042
     Dates: start: 20071023, end: 20071030
  2. LEUCOVORIN CALCIUM [Suspect]
     Indication: COLON CANCER STAGE III
     Dosage: START DATE OF FIRST COURSE:30-JUL-2007.
     Route: 042
     Dates: start: 20071023, end: 20071023
  3. FLUOROURACIL [Suspect]
     Indication: COLON CANCER STAGE III
     Dosage: START DATE OF FIRST COURSE:30-JUL-2007.
     Route: 042
     Dates: start: 20071023, end: 20071023
  4. OXALIPLATIN [Suspect]
     Indication: COLON CANCER STAGE III
     Dosage: START DATE OF FIRST COURSE:30-JUL-2007.
     Route: 042
     Dates: start: 20071023, end: 20071023

REACTIONS (1)
  - PANCREATITIS [None]
